FAERS Safety Report 21599375 (Version 2)
Quarter: 2022Q4

REPORT INFORMATION
  Report Type: Spontaneous
  Country: CA (occurrence: CA)
  Receive Date: 20221115
  Receipt Date: 20221201
  Transmission Date: 20230113
  Serious: Yes (Death, Hospitalization)
  Sender: FDA-Public Use
  Company Number: CA-KARYOPHARM THERAPEUTICS, INC.-2022KPT001320

PATIENT

DRUGS (7)
  1. XPOVIO [Suspect]
     Active Substance: SELINEXOR
     Indication: Plasma cell myeloma
     Dosage: 100 MG, WEEKLY FOR 5 WEEKS (1 CYCLE)
     Route: 048
     Dates: start: 20221026, end: 20221111
  2. DEXAMETHASONE [Concomitant]
     Active Substance: DEXAMETHASONE
     Dosage: UNK
  3. DULOXETINE [Concomitant]
     Active Substance: DULOXETINE
     Dosage: 30 MG, QD
  4. TYLENOL WITH CODEINE [Concomitant]
     Active Substance: ACETAMINOPHEN\CODEINE PHOSPHATE
  5. OLANZAPINE [Concomitant]
     Active Substance: OLANZAPINE
  6. ONDANSETRON [Concomitant]
     Active Substance: ONDANSETRON
  7. APREPITANT [Concomitant]
     Active Substance: APREPITANT

REACTIONS (7)
  - Plasma cell myeloma [Fatal]
  - General physical health deterioration [Not Recovered/Not Resolved]
  - Acute kidney injury [Unknown]
  - Incontinence [Unknown]
  - Hypersomnia [Not Recovered/Not Resolved]
  - Peripheral swelling [Unknown]
  - Diarrhoea [Unknown]

NARRATIVE: CASE EVENT DATE: 20220101
